FAERS Safety Report 10239273 (Version 2)
Quarter: 2014Q2

REPORT INFORMATION
  Report Type: Spontaneous
  Country: BR (occurrence: BR)
  Receive Date: 20140616
  Receipt Date: 20140616
  Transmission Date: 20141212
  Serious: Yes (Other)
  Sender: FDA-Public Use
  Company Number: BR-PFIZER INC-2014151595

PATIENT
  Age: 36 Year
  Sex: Female
  Weight: 65.7 kg

DRUGS (4)
  1. PREMARIN [Suspect]
     Indication: ASSISTED FERTILISATION
     Dosage: 1.25 MG, 2X/DAY (2 TABLETS OF 0.625MG IN THE MORNING AND 2 TABLETS OF 0.625MG AT NIGHT)
     Dates: start: 20140508
  2. FRAGMIN [Suspect]
     Indication: HYPERCOAGULATION
     Dosage: UNK
     Dates: start: 20140507
  3. NATELE [Concomitant]
     Indication: VITAMIN SUPPLEMENTATION
     Dosage: UNK
  4. FOLIC ACID [Concomitant]
     Dosage: UNK

REACTIONS (2)
  - Haemorrhage in pregnancy [Unknown]
  - Nausea [Unknown]
